FAERS Safety Report 5272519-5 (Version None)
Quarter: 2007Q1

REPORT INFORMATION
  Report Type: 
  Country: None (occurrence: None)
  Receive Date: 20070322
  Receipt Date: 20061024
  Transmission Date: 20070707
  Serious: No
  Sender: FDA-Public Use
  Company Number: US-BRISTOL-MYERS SQUIBB COMPANY-13493390

PATIENT
  Age: 62 Year
  Sex: Female
  Weight: 59 kg

DRUGS (3)
  1. KENALOG [Suspect]
     Indication: SCAR
     Route: 026
     Dates: start: 20040616, end: 20060530
  2. PREMARIN [Concomitant]
  3. PROVERA [Concomitant]

REACTIONS (1)
  - INJECTION SITE CYST [None]
